FAERS Safety Report 18136605 (Version 5)
Quarter: 2020Q4

REPORT INFORMATION
  Report Type: Spontaneous
  Country: US (occurrence: US)
  Receive Date: 20200811
  Receipt Date: 20201127
  Transmission Date: 20210113
  Serious: Yes (Other)
  Sender: FDA-Public Use
  Company Number: US-DSJP-DSU-2020-122944

PATIENT
  Sex: Female

DRUGS (1)
  1. ENHERTU [Suspect]
     Active Substance: FAM-TRASTUZUMAB DERUXTECAN-NXKI
     Indication: PRODUCT USED FOR UNKNOWN INDICATION
     Dosage: UNK
     Route: 065

REACTIONS (7)
  - Migraine [Unknown]
  - Hypersensitivity [Unknown]
  - Neutropenia [Unknown]
  - Disease progression [Unknown]
  - Alopecia [Unknown]
  - Dry eye [Unknown]
  - Fatigue [Unknown]

NARRATIVE: CASE EVENT DATE: 20200813
